FAERS Safety Report 20161019 (Version 2)
Quarter: 2021Q4

REPORT INFORMATION
  Report Type: Spontaneous
  Country: FR (occurrence: FR)
  Receive Date: 20211208
  Receipt Date: 20211214
  Transmission Date: 20220303
  Serious: Yes (Death)
  Sender: FDA-Public Use
  Company Number: FR-PFIZER INC-202101655816

PATIENT
  Age: 43 Year
  Sex: Male

DRUGS (2)
  1. OXALIPLATIN [Suspect]
     Active Substance: OXALIPLATIN
     Indication: Colon cancer metastatic
     Dosage: CUMULATIVE OXALIPLATIN DOSE 4585 MG, 28 CYCLES
     Dates: start: 201809, end: 202004
  2. IRINOTECAN HYDROCHLORIDE [Concomitant]
     Active Substance: IRINOTECAN HYDROCHLORIDE
     Indication: Colon cancer metastatic
     Dosage: 180 MG/M2, CYCLIC
     Dates: start: 201809, end: 202004

REACTIONS (2)
  - Venoocclusive liver disease [Fatal]
  - Nodular regenerative hyperplasia [Fatal]
